FAERS Safety Report 7355361-0 (Version None)
Quarter: 2011Q1

REPORT INFORMATION
  Report Type: 
  Country: None (occurrence: None)
  Receive Date: 20110316
  Receipt Date: 20110301
  Transmission Date: 20110831
  Serious: Yes (Hospitalization, Congenital Anomaly, Other)
  Sender: FDA-Public Use
  Company Number: NO-ROCHE-763143

PATIENT
  Sex: Male
  Weight: 3 kg

DRUGS (1)
  1. ROACCUTAN [Suspect]
     Dosage: RECEIVED DURING PREGNANCY WEEKS 6-10 (WEEKS 4-8 AFTER CONCEPTION)
     Route: 064

REACTIONS (4)
  - BRAIN MALFORMATION [None]
  - HYPOTHERMIA [None]
  - DYSPNOEA [None]
  - CONVULSION [None]
